FAERS Safety Report 10545125 (Version 1)
Quarter: 2014Q4

REPORT INFORMATION
  Report Type: Spontaneous
  Country: US (occurrence: US)
  Receive Date: 20141027
  Receipt Date: 20141027
  Transmission Date: 20150529
  Serious: Yes (Hospitalization, Other)
  Sender: FDA-Public Use
  Company Number: US-BAYER-2014-152426

PATIENT
  Sex: Male

DRUGS (5)
  1. ALPRAZOLAM. [Concomitant]
     Active Substance: ALPRAZOLAM
     Indication: SLEEP DISORDER THERAPY
     Dosage: UNK UNK, QD (JUST IN NIGHT)
     Dates: start: 1998
  2. METOPROLOL SUCCINATE. [Concomitant]
     Active Substance: METOPROLOL SUCCINATE
     Indication: CARDIAC ABLATION
     Dosage: UNK UNK, BID (10^O CLOCK IN MORNING AND 10^O CLOCK AT NIGHT)
     Dates: start: 20140515
  3. BAYER GENUINE ASPIRIN [Suspect]
     Active Substance: ASPIRIN
  4. PLAVIX [Concomitant]
     Active Substance: CLOPIDOGREL BISULFATE
  5. DOFETILIDE [Concomitant]
     Active Substance: DOFETILIDE
     Indication: CARDIAC ABLATION
     Dosage: UNK UNK, BID (10^O CLOCK IN MORNING AND 10^O CLOCK AT NIGHT)
     Dates: start: 20140515

REACTIONS (2)
  - Cardiac ablation [None]
  - Drug hypersensitivity [Unknown]

NARRATIVE: CASE EVENT DATE: 2010
